FAERS Safety Report 16154989 (Version 1)
Quarter: 2019Q2

REPORT INFORMATION
  Report Type: Spontaneous
  Country: PH (occurrence: FR)
  Receive Date: 20190403
  Receipt Date: 20190403
  Transmission Date: 20190711
  Serious: Yes (Hospitalization)
  Sender: FDA-Public Use
  Company Number: PH-ANIPHARMA-2019-FR-000064

PATIENT
  Age: 65 Year
  Sex: Female

DRUGS (5)
  1. PACLITAXEL. [Suspect]
     Active Substance: PACLITAXEL
     Dosage: 80 MG/M2 UNK
     Route: 042
     Dates: start: 20170717, end: 20171106
  2. ANASTROZOLE. [Suspect]
     Active Substance: ANASTROZOLE
     Indication: NEOPLASM MALIGNANT
     Dosage: 1 DF UNK
     Route: 048
     Dates: start: 20180119, end: 20180808
  3. AROMASIN [Suspect]
     Active Substance: EXEMESTANE
     Dosage: 1 DF UNK
     Route: 048
     Dates: start: 201808
  4. HERCEPTIN [Suspect]
     Active Substance: TRASTUZUMAB
     Dosage: 8 MG/KG UNK
     Route: 042
     Dates: start: 20170717, end: 20180921
  5. PERJETA [Suspect]
     Active Substance: PERTUZUMAB
     Dosage: 840 MG UNK
     Route: 042
     Dates: start: 20170717, end: 20170921

REACTIONS (1)
  - Endocarditis [Recovered/Resolved with Sequelae]

NARRATIVE: CASE EVENT DATE: 20180923
